FAERS Safety Report 9982965 (Version 1)
Quarter: 2014Q1

REPORT INFORMATION
  Report Type: Spontaneous
  Country: US (occurrence: None)
  Receive Date: 20140131
  Receipt Date: 20140131
  Transmission Date: 20141002
  Serious: Yes (Other)
  Sender: FDA-Public Use
  Company Number: 086617

PATIENT
  Sex: Female
  Weight: 99.8 kg

DRUGS (12)
  1. KEPPRA [Suspect]
     Indication: CONVULSION
     Dosage: (1500 MG QD, STRENGTH: 500 MG ORAL)
     Route: 048
  2. NEURONTIN [Suspect]
     Indication: CONVULSION
     Dosage: 900 MG TID, 300 MG ORAL
  3. TOPAMAX [Suspect]
     Indication: CONVULSION
  4. CODEINE [Concomitant]
  5. NAPROXEN [Concomitant]
  6. FERROUS SULPHATE /00023503/ [Concomitant]
  7. SINGULAIR /01362601/ [Concomitant]
  8. DEPAKOTE ER [Concomitant]
  9. DIOVAN HCT [Concomitant]
  10. IMITREX /01044801/ [Concomitant]
  11. ADVAIR [Concomitant]
  12. VENTOLIN /00139501/ [Concomitant]

REACTIONS (3)
  - Convulsion [None]
  - Memory impairment [None]
  - Drug ineffective [None]
